FAERS Safety Report 22105426 (Version 3)
Quarter: 2023Q2

REPORT INFORMATION
  Report Type: Report from Study
  Country: CA (occurrence: CA)
  Receive Date: 20230317
  Receipt Date: 20230517
  Transmission Date: 20230721
  Serious: Yes (Other)
  Sender: FDA-Public Use
  Company Number: CA-ABBVIE-4343686

PATIENT
  Sex: Female
  Weight: 77.11 kg

DRUGS (4)
  1. SKYRIZI [Suspect]
     Active Substance: RISANKIZUMAB-RZAA
     Indication: Psoriasis
     Dosage: 150MG AT WEEK 0, 2 AND THEN 1 IN 12 WEEKS
     Route: 058
     Dates: start: 20230125
  2. SKYRIZI [Suspect]
     Active Substance: RISANKIZUMAB-RZAA
     Indication: Psoriasis
     Route: 058
  3. SKYRIZI [Suspect]
     Active Substance: RISANKIZUMAB-RZAA
  4. CETIRIZINE [Concomitant]
     Active Substance: CETIRIZINE HYDROCHLORIDE
     Indication: Product used for unknown indication

REACTIONS (10)
  - Suffocation feeling [Recovered/Resolved]
  - Throat irritation [Not Recovered/Not Resolved]
  - Pruritus allergic [Unknown]
  - Eye pruritus [Not Recovered/Not Resolved]
  - Perfume sensitivity [Unknown]
  - Rhinorrhoea [Not Recovered/Not Resolved]
  - Lacrimation increased [Unknown]
  - Hypersensitivity [Unknown]
  - Allergy to animal [Not Recovered/Not Resolved]
  - Seasonal allergy [Not Recovered/Not Resolved]

NARRATIVE: CASE EVENT DATE: 20230101
